FAERS Safety Report 5410139-X (Version None)
Quarter: 2007Q3

REPORT INFORMATION
  Report Type: 
  Country: None (occurrence: None)
  Receive Date: 20070713
  Receipt Date: 20070406
  Transmission Date: 20080115
  Serious: No
  Sender: FDA-Public Use
  Company Number: 2007SP001247

PATIENT
  Age: 62 Year
  Sex: Female
  Weight: 68.9467 kg

DRUGS (5)
  1. LUNESTA [Suspect]
     Indication: INSOMNIA
     Dosage: 2 MG;1X;ORAL
     Route: 048
     Dates: start: 20070404, end: 20070404
  2. ATORVASTATIN CALCIUM [Concomitant]
  3. PLAVIX [Concomitant]
  4. ACTONEL [Concomitant]
  5. DOXYCYCLINE [Concomitant]

REACTIONS (2)
  - MEMORY IMPAIRMENT [None]
  - THERAPEUTIC RESPONSE UNEXPECTED [None]
